FAERS Safety Report 26077781 (Version 1)
Quarter: 2025Q4

REPORT INFORMATION
  Report Type: Spontaneous
  Country: US (occurrence: US)
  Receive Date: 20251122
  Receipt Date: 20251122
  Transmission Date: 20260118
  Serious: No
  Sender: MDD OPERATIONS
  Company Number: US-MDD US Operations-MDD202508-002956

PATIENT
  Age: 78 Year
  Sex: Male

DRUGS (3)
  1. ONAPGO [Suspect]
     Active Substance: APOMORPHINE HYDROCHLORIDE
     Indication: Product used for unknown indication
     Dosage: NOT PROVIDED
     Dates: start: 20250805
  2. ONAPGO [Suspect]
     Active Substance: APOMORPHINE HYDROCHLORIDE
     Dosage: PER HOUR
  3. ONAPGO [Suspect]
     Active Substance: APOMORPHINE HYDROCHLORIDE
     Dosage: AS ORDERED
     Route: 058
     Dates: start: 202508

REACTIONS (4)
  - Hypoaesthesia [Recovered/Resolved]
  - Feeling abnormal [Recovered/Resolved]
  - Device occlusion [Unknown]
  - Device malfunction [Unknown]

NARRATIVE: CASE EVENT DATE: 20250805
